FAERS Safety Report 6185992-5 (Version None)
Quarter: 2009Q2

REPORT INFORMATION
  Report Type: 
  Country: None (occurrence: None)
  Receive Date: 20090511
  Receipt Date: 20090507
  Transmission Date: 20091009
  Serious: Yes (Hospitalization)
  Sender: FDA-Public Use
  Company Number: DE-PFIZER INC-2008101324

PATIENT

DRUGS (4)
  1. CELEBREX [Suspect]
     Indication: PAIN
     Route: 048
     Dates: start: 20080227, end: 20080401
  2. KATADOLON [Interacting]
     Indication: PAIN
     Route: 048
     Dates: start: 20080227, end: 20080401
  3. TRAMADOL [Interacting]
     Indication: PAIN
     Route: 048
     Dates: start: 20080227, end: 20080401
  4. DRUG, UNSPECIFIED [Concomitant]

REACTIONS (2)
  - DRUG INTERACTION [None]
  - HEPATITIS ACUTE [None]
